FAERS Safety Report 13712002 (Version 1)
Quarter: 2017Q3

REPORT INFORMATION
  Report Type: Spontaneous
  Country: US (occurrence: US)
  Receive Date: 20170703
  Receipt Date: 20170703
  Transmission Date: 20171127
  Serious: Yes (Other)
  Sender: FDA-Public Use
  Company Number: None

PATIENT
  Age: 50 Year
  Sex: Male
  Weight: 77.85 kg

DRUGS (1)
  1. VIVITROL [Suspect]
     Active Substance: NALTREXONE
     Indication: ALCOHOLISM
     Dosage: IM EVERY 28 DAYS?
     Route: 030
     Dates: start: 20170606

REACTIONS (2)
  - Burns second degree [None]
  - Rash [None]

NARRATIVE: CASE EVENT DATE: 20170606
